FAERS Safety Report 7070666-9 (Version None)
Quarter: 2010Q4

REPORT INFORMATION
  Report Type: 
  Country: None (occurrence: None)
  Receive Date: 20101029
  Receipt Date: 20101019
  Transmission Date: 20110411
  Serious: Yes (Other)
  Sender: FDA-Public Use
  Company Number: AU-PFIZER INC-2010134906

PATIENT
  Sex: Female

DRUGS (1)
  1. XANAX [Suspect]
     Dosage: 250 UG, 1X/DAY

REACTIONS (4)
  - ANXIETY [None]
  - DYSPHEMIA [None]
  - PANIC ATTACK [None]
  - SYNCOPE [None]
